FAERS Safety Report 23633904 (Version 1)
Quarter: 2024Q1

REPORT INFORMATION
  Report Type: Spontaneous
  Country: PT (occurrence: PT)
  Receive Date: 20240314
  Receipt Date: 20240314
  Transmission Date: 20240410
  Serious: Yes (Hospitalization, Other)
  Sender: FDA-Public Use
  Company Number: PT-ROCHE-3522439

PATIENT
  Age: 71 Year
  Sex: Male

DRUGS (41)
  1. LEFLUNOMIDE [Suspect]
     Active Substance: LEFLUNOMIDE
     Dosage: MONTH 3
     Route: 065
  2. LEFLUNOMIDE [Suspect]
     Active Substance: LEFLUNOMIDE
     Dosage: 20.000MG QD
     Route: 065
  3. LEFLUNOMIDE [Suspect]
     Active Substance: LEFLUNOMIDE
     Dosage: MONTH 10
     Route: 065
  4. LEFLUNOMIDE [Suspect]
     Active Substance: LEFLUNOMIDE
     Dosage: MONTH 11
     Route: 065
  5. LEFLUNOMIDE [Suspect]
     Active Substance: LEFLUNOMIDE
     Dosage: MONTH 14
     Route: 065
  6. LEFLUNOMIDE [Suspect]
     Active Substance: LEFLUNOMIDE
     Indication: Product used for unknown indication
     Dosage: MONTH 5
     Route: 065
  7. LEFLUNOMIDE [Suspect]
     Active Substance: LEFLUNOMIDE
     Dosage: MONTH 8
     Route: 065
  8. MYCOPHENOLATE MOFETIL [Suspect]
     Active Substance: MYCOPHENOLATE MOFETIL
     Dosage: MONTH 11
     Route: 065
  9. MYCOPHENOLATE MOFETIL [Suspect]
     Active Substance: MYCOPHENOLATE MOFETIL
     Dosage: MONTH 3
     Route: 065
  10. MYCOPHENOLATE MOFETIL [Suspect]
     Active Substance: MYCOPHENOLATE MOFETIL
     Dosage: 250 MG, BID, MONTH 1
     Route: 065
  11. MYCOPHENOLATE MOFETIL [Suspect]
     Active Substance: MYCOPHENOLATE MOFETIL
     Dosage: BID, MONTH 10
     Route: 065
  12. MYCOPHENOLATE MOFETIL [Suspect]
     Active Substance: MYCOPHENOLATE MOFETIL
     Dosage: BID, MONTH 5
     Route: 065
  13. MYCOPHENOLATE MOFETIL [Suspect]
     Active Substance: MYCOPHENOLATE MOFETIL
     Indication: Immunosuppressant drug therapy
     Dosage: TID, MONTH 14
     Route: 065
  14. MYCOPHENOLATE MOFETIL [Suspect]
     Active Substance: MYCOPHENOLATE MOFETIL
     Dosage: TID, MONTH 8
     Route: 065
  15. MYCOPHENOLATE MOFETIL [Suspect]
     Active Substance: MYCOPHENOLATE MOFETIL
     Dosage: 750 MG, BID, DISCHARGE
     Route: 065
     Dates: start: 2016
  16. PREDNISOLONE [Suspect]
     Active Substance: PREDNISOLONE
     Dosage: MONTH 8
     Route: 065
  17. PREDNISOLONE [Suspect]
     Active Substance: PREDNISOLONE
     Dosage: MONTH 3
     Route: 065
  18. PREDNISOLONE [Suspect]
     Active Substance: PREDNISOLONE
     Dosage: 15.000MG QD
     Route: 065
  19. PREDNISOLONE [Suspect]
     Active Substance: PREDNISOLONE
     Dosage: MONTH 11
     Route: 065
  20. PREDNISOLONE [Suspect]
     Active Substance: PREDNISOLONE
     Dosage: DISCHARGE
     Route: 065
     Dates: start: 2016
  21. PREDNISOLONE [Suspect]
     Active Substance: PREDNISOLONE
     Indication: Immunosuppressant drug therapy
     Dosage: MONTH 10
     Route: 065
  22. PREDNISOLONE [Suspect]
     Active Substance: PREDNISOLONE
     Dosage: MONTH 14
     Route: 065
  23. PREDNISOLONE [Suspect]
     Active Substance: PREDNISOLONE
     Dosage: MONTH 5
     Route: 065
  24. TACROLIMUS [Suspect]
     Active Substance: TACROLIMUS
     Dosage: MONTH 14
     Route: 065
  25. TACROLIMUS [Suspect]
     Active Substance: TACROLIMUS
     Dosage: MONTH 11
     Route: 065
  26. TACROLIMUS [Suspect]
     Active Substance: TACROLIMUS
     Dosage: MONTH 11
     Route: 065
  27. TACROLIMUS [Suspect]
     Active Substance: TACROLIMUS
     Dosage: MONTH 8
     Route: 065
  28. TACROLIMUS [Suspect]
     Active Substance: TACROLIMUS
     Dosage: MONTH 5
     Route: 065
  29. TACROLIMUS [Suspect]
     Active Substance: TACROLIMUS
     Indication: Immunosuppressant drug therapy
     Dosage: MONTH 3
     Route: 065
  30. TACROLIMUS [Suspect]
     Active Substance: TACROLIMUS
     Dosage: 9.000MG QD
     Route: 065
  31. TACROLIMUS [Suspect]
     Active Substance: TACROLIMUS
     Dosage: DISCHARGE
     Route: 065
     Dates: start: 2016
  32. TACROLIMUS [Suspect]
     Active Substance: TACROLIMUS
     Dosage: MONTH 1
     Route: 065
  33. THYMOGLOBULINE [Suspect]
     Active Substance: LAPINE T-LYMPHOCYTE IMMUNE GLOBULIN
     Indication: Immunosuppressant drug therapy
     Dosage: 7-DAY CYCLE
     Route: 065
  34. VALGANCICLOVIR [Suspect]
     Active Substance: VALGANCICLOVIR
     Dosage: DISCHARGE
     Route: 065
  35. VALGANCICLOVIR [Suspect]
     Active Substance: VALGANCICLOVIR
     Dosage: MONTH 1
     Route: 065
  36. VALGANCICLOVIR [Suspect]
     Active Substance: VALGANCICLOVIR
     Dosage: MONTH 10
     Route: 065
  37. VALGANCICLOVIR [Suspect]
     Active Substance: VALGANCICLOVIR
     Dosage: MONTH 11
     Route: 065
  38. VALGANCICLOVIR [Suspect]
     Active Substance: VALGANCICLOVIR
     Dosage: MONTH 14
     Route: 065
  39. VALGANCICLOVIR [Suspect]
     Active Substance: VALGANCICLOVIR
     Indication: Cytomegalovirus viraemia
     Dosage: MONTH 3
     Route: 065
  40. VALGANCICLOVIR [Suspect]
     Active Substance: VALGANCICLOVIR
     Dosage: MONTH 5
     Route: 065
  41. VALGANCICLOVIR [Suspect]
     Active Substance: VALGANCICLOVIR
     Dosage: INCREASED TO 450 MG, BID, MONTH 8
     Route: 065

REACTIONS (4)
  - Polyomavirus-associated nephropathy [Unknown]
  - Renal impairment [Unknown]
  - Cytomegalovirus viraemia [Recovered/Resolved]
  - Off label use [Unknown]
